FAERS Safety Report 5843955-0 (Version None)
Quarter: 2008Q3

REPORT INFORMATION
  Report Type: 
  Country: None (occurrence: None)
  Receive Date: 20080808
  Receipt Date: 20080728
  Transmission Date: 20090109
  Serious: Yes (Hospitalization)
  Sender: FDA-Public Use
  Company Number: 1000000409

PATIENT
  Age: 59 Year
  Sex: Female

DRUGS (7)
  1. CITALOPRAM HYDROBROMIDE [Suspect]
     Dosage: 40 MG (40 MG, 1 IN 1 D), ORAL
     Route: 048
     Dates: start: 20080122
  2. INVEGA [Suspect]
     Dosage: 6 MG (6 MG, 1 IN 1 D), ORAL
     Route: 048
     Dates: start: 20080305, end: 20080310
  3. INVEGA [Suspect]
     Dosage: 3 MG (3 MG, 1 IN 1 D), ORAL
     Route: 048
     Dates: start: 20080207, end: 20080304
  4. DIOVAN [Concomitant]
  5. TORSEMIDE [Concomitant]
  6. LEVOTHYROXINE SODIUM [Concomitant]
  7. BISOPROLOL FUMARATE [Concomitant]

REACTIONS (1)
  - PARKINSONISM [None]
